FAERS Safety Report 7903472-0 (Version None)
Quarter: 2011Q4

REPORT INFORMATION
  Report Type: 
  Country: None (occurrence: None)
  Receive Date: 20111108
  Receipt Date: 20111108
  Transmission Date: 20120403
  Serious: No
  Sender: FDA-Public Use
  Company Number: None

PATIENT
  Sex: Female
  Weight: 49.8957 kg

DRUGS (1)
  1. FENTANYL-50 [Suspect]
     Indication: INTERVERTEBRAL DISC DEGENERATION
     Dosage: 50 MCG 948? 061 TRANSDERMAL
     Route: 062
     Dates: start: 20110513, end: 20110608

REACTIONS (3)
  - BLISTER [None]
  - RASH [None]
  - PRODUCT SUBSTITUTION ISSUE [None]
